FAERS Safety Report 10606797 (Version 1)
Quarter: 2014Q4

REPORT INFORMATION
  Report Type: Spontaneous
  Country: US (occurrence: None)
  Receive Date: 20141124
  Receipt Date: 20141124
  Transmission Date: 20150529
  Serious: Yes (Hospitalization)
  Sender: FDA-Public Use
  Company Number: None

PATIENT
  Age: 55 Year
  Sex: Male
  Weight: 88.91 kg

DRUGS (6)
  1. DOCUSATE SODIUM. [Concomitant]
     Active Substance: DOCUSATE SODIUM
  2. ONDANSETRON [Concomitant]
     Active Substance: ONDANSETRON
  3. CHLORDIAZEPOXIDE [Concomitant]
     Active Substance: CHLORDIAZEPOXIDE
  4. OXYCODONE [Concomitant]
     Active Substance: OXYCODONE
  5. EXPAREL [Suspect]
     Active Substance: BUPIVACAINE
     Indication: PROCEDURAL PAIN
     Dosage: 20 ML, ONCE-POST OPERATIVE, SUBCUTANEOUS
     Route: 058
     Dates: start: 20131023
  6. LORAZEPAM. [Concomitant]
     Active Substance: LORAZEPAM

REACTIONS (2)
  - Postoperative wound infection [None]
  - Wound dehiscence [None]

NARRATIVE: CASE EVENT DATE: 20131028
